FAERS Safety Report 19816155 (Version 1)
Quarter: 2021Q3

REPORT INFORMATION
  Report Type: Spontaneous
  Country: US (occurrence: US)
  Receive Date: 20210910
  Receipt Date: 20210910
  Transmission Date: 20211014
  Serious: Yes (Other)
  Sender: FDA-Public Use
  Company Number: US-TEVA-2021-US-1950090

PATIENT
  Age: 65 Year
  Sex: Female
  Weight: 88.45 kg

DRUGS (3)
  1. COPAXONE [Suspect]
     Active Substance: GLATIRAMER ACETATE
     Route: 065
  2. COPAXONE [Suspect]
     Active Substance: GLATIRAMER ACETATE
     Route: 065
  3. COPAXONE [Suspect]
     Active Substance: GLATIRAMER ACETATE
     Route: 065
     Dates: start: 20210831

REACTIONS (22)
  - Pneumonia [Recovered/Resolved]
  - Injection site urticaria [Unknown]
  - Injection site warmth [Unknown]
  - Muscle spasms [Recovering/Resolving]
  - Neoplasm malignant [Unknown]
  - Dysgeusia [Recovered/Resolved]
  - Chills [Unknown]
  - Dyspnoea [Recovered/Resolved]
  - Wound [Not Recovered/Not Resolved]
  - Asthenia [Not Recovered/Not Resolved]
  - Scar [Not Recovered/Not Resolved]
  - Pain [Not Recovered/Not Resolved]
  - Gait inability [Recovering/Resolving]
  - Injection site induration [Unknown]
  - Throat tightness [Recovering/Resolving]
  - Cough [Recovered/Resolved]
  - Muscle tightness [Recovering/Resolving]
  - Fatigue [Not Recovered/Not Resolved]
  - Injection site pain [Unknown]
  - Feeling abnormal [Recovered/Resolved]
  - Speech disorder [Recovering/Resolving]
  - Muscle rigidity [Unknown]

NARRATIVE: CASE EVENT DATE: 202003
